FAERS Safety Report 8902824 (Version 1)
Quarter: 2012Q4

REPORT INFORMATION
  Report Type: 
  Country: DE (occurrence: DE)
  Receive Date: 20121113
  Receipt Date: 20121113
  Transmission Date: 20130627
  Serious: Yes (Life-Threatening)
  Sender: FDA-Public Use
  Company Number: DE-BAYER-2012-117401

PATIENT
  Sex: Female

DRUGS (1)
  1. AVALOX [Suspect]
     Indication: BRONCHIAL INFECTION
     Dosage: 400 mg, UNK
     Route: 048
     Dates: start: 20121015, end: 20121021

REACTIONS (3)
  - Toxic epidermal necrolysis [Not Recovered/Not Resolved]
  - Acute myocardial infarction [Not Recovered/Not Resolved]
  - Acute respiratory failure [Not Recovered/Not Resolved]
